FAERS Safety Report 21298954 (Version 1)
Quarter: 2022Q3

REPORT INFORMATION
  Report Type: Spontaneous
  Country: US (occurrence: None)
  Receive Date: 20220905
  Receipt Date: 20220905
  Transmission Date: 20221027
  Serious: Yes (Disabling)
  Sender: FDA-Public Use
  Company Number: None

PATIENT
  Sex: 0

DRUGS (1)
  1. GADAVIST [Suspect]
     Active Substance: GADOBUTROL

REACTIONS (4)
  - Exposure via breast milk [None]
  - Contrast media deposition [None]
  - Metal poisoning [None]
  - Accidental exposure to product by child [None]

NARRATIVE: CASE EVENT DATE: 20220413
